FAERS Safety Report 25833725 (Version 1)
Quarter: 2025Q3

REPORT INFORMATION
  Report Type: Spontaneous
  Country: US (occurrence: US)
  Receive Date: 20250922
  Receipt Date: 20250922
  Transmission Date: 20251021
  Serious: No
  Sender: SANOFI AVENTIS
  Company Number: US-SA-2025SA277840

PATIENT
  Sex: Male

DRUGS (10)
  1. KEVZARA [Suspect]
     Active Substance: SARILUMAB
     Indication: Rheumatoid arthritis
     Dosage: 200 MG, QOW
     Route: 058
  2. TRAMADOL [Concomitant]
     Active Substance: TRAMADOL
  3. ALLOPURINOL [Concomitant]
     Active Substance: ALLOPURINOL
  4. MIRTAZAPINE [Concomitant]
     Active Substance: MIRTAZAPINE
  5. OMEPRAZOLE [Concomitant]
     Active Substance: OMEPRAZOLE
  6. REMERON [Concomitant]
     Active Substance: MIRTAZAPINE
  7. TOPAMAX [Concomitant]
     Active Substance: TOPIRAMATE
  8. ZOLOFT [Concomitant]
     Active Substance: SERTRALINE HYDROCHLORIDE
  9. HALDOL [Concomitant]
     Active Substance: HALOPERIDOL
  10. LATUDA [Concomitant]
     Active Substance: LURASIDONE HYDROCHLORIDE

REACTIONS (1)
  - Fatigue [Unknown]
